FAERS Safety Report 4918791-X (Version None)
Quarter: 2006Q1

REPORT INFORMATION
  Report Type: 
  Country: None (occurrence: None)
  Receive Date: 20060216
  Receipt Date: 20060208
  Transmission Date: 20060701
  Serious: Yes (Hospitalization)
  Sender: FDA-Public Use
  Company Number: GXBR2006US00578

PATIENT
  Age: 14 Year
  Sex: Female

DRUGS (1)
  1. ISONIAZID [Suspect]
     Dosage: ORAL
     Route: 048

REACTIONS (3)
  - CONVULSION [None]
  - OVERDOSE [None]
  - RHABDOMYOLYSIS [None]
